FAERS Safety Report 5668602-2 (Version None)
Quarter: 2008Q1

REPORT INFORMATION
  Report Type: 
  Country: None (occurrence: None)
  Receive Date: 20080312
  Receipt Date: 20080303
  Transmission Date: 20080703
  Serious: Yes (Disabling)
  Sender: FDA-Public Use
  Company Number: APP200800149

PATIENT
  Sex: Male

DRUGS (2)
  1. SENSORCAINE [Suspect]
     Indication: MUSCULOSKELETAL PAIN
     Dosage: CONTINUOUS VIA PAIN PUMP
     Dates: start: 20040927
  2. I-FLOW PAIN PUMP [Suspect]
     Indication: MUSCULOSKELETAL PAIN
     Dates: start: 20040927

REACTIONS (3)
  - CHONDROLYSIS [None]
  - MUSCULOSKELETAL DISCOMFORT [None]
  - MUSCULOSKELETAL PAIN [None]
